FAERS Safety Report 6050040-4 (Version None)
Quarter: 2009Q1

REPORT INFORMATION
  Report Type: 
  Country: None (occurrence: None)
  Receive Date: 20090121
  Receipt Date: 20090115
  Transmission Date: 20090719
  Serious: Yes (Other)
  Sender: FDA-Public Use
  Company Number: 1000001582

PATIENT
  Age: 58 Year
  Sex: Male
  Weight: 90.7194 kg

DRUGS (19)
  1. LEXAPRO [Suspect]
     Indication: DEPRESSION
     Dosage: ORAL
     Route: 048
     Dates: start: 20031001, end: 20070501
  2. XANAX [Suspect]
     Indication: ANXIETY
     Dates: start: 20031001, end: 20070501
  3. XANAX [Suspect]
     Indication: SLEEP DISORDER
     Dates: start: 20031001, end: 20070501
  4. ZOLOFT [Suspect]
     Dates: start: 20031001
  5. NEURONTIN [Suspect]
     Indication: AMNESIA
     Dates: start: 20031001
  6. NEURONTIN [Suspect]
     Indication: RESTLESS LEGS SYNDROME
     Dates: start: 20031001
  7. TRAZODONE HYDROCHLORIDE [Suspect]
     Dates: start: 20031001
  8. SEROQUEL [Suspect]
     Indication: DEPRESSION
     Dates: start: 20031001, end: 20070501
  9. WELLBUTRIN [Suspect]
     Indication: DEPRESSION
     Dates: start: 20031001, end: 20070501
  10. RESTORIL [Suspect]
     Indication: DEPRESSION
     Dates: start: 20031001, end: 20070501
  11. CYMBALTA [Suspect]
     Indication: DEPRESSION
     Dates: start: 20031001, end: 20070501
  12. EFFEXOR [Suspect]
     Indication: DEPRESSION
  13. FENOFIBRATE [Concomitant]
  14. LEVOTHYROXINE SODIUM [Concomitant]
  15. AMBIEN [Concomitant]
  16. HYDROCHLOROTHIAZIDE [Concomitant]
  17. HYDROCODONE BITARTRATE + ACETAMINOPHEN [Concomitant]
  18. CARISOPRODOL [Concomitant]
  19. LISINOPRIL [Concomitant]

REACTIONS (58)
  - ABNORMAL BEHAVIOUR [None]
  - ACTIVITIES OF DAILY LIVING IMPAIRED [None]
  - AMNESIA [None]
  - ANGER [None]
  - ANOREXIA [None]
  - ANXIETY [None]
  - APHASIA [None]
  - ASBESTOSIS [None]
  - ATTENTION DEFICIT/HYPERACTIVITY DISORDER [None]
  - BACK PAIN [None]
  - BLOOD CHOLESTEROL INCREASED [None]
  - BLOOD TRIGLYCERIDES ABNORMAL [None]
  - BRUXISM [None]
  - CONDITION AGGRAVATED [None]
  - CONSTIPATION [None]
  - CONVULSION [None]
  - DEPRESSION [None]
  - DIALYSIS [None]
  - EMOTIONAL DISTRESS [None]
  - FEELING ABNORMAL [None]
  - HALLUCINATION [None]
  - HEADACHE [None]
  - HYPERHIDROSIS [None]
  - HYPERTENSION [None]
  - HYPOPHAGIA [None]
  - HYPOTHYROIDISM [None]
  - INCORRECT DOSE ADMINISTERED [None]
  - INSOMNIA [None]
  - LETHARGY [None]
  - MENTAL DISORDER [None]
  - MUSCLE SPASMS [None]
  - MUSCLE TWITCHING [None]
  - NIGHT SWEATS [None]
  - NIGHTMARE [None]
  - PAIN [None]
  - PALLOR [None]
  - PANCREATITIS [None]
  - PANIC ATTACK [None]
  - PARANOIA [None]
  - RENAL FAILURE [None]
  - RESTLESS LEGS SYNDROME [None]
  - ROAD TRAFFIC ACCIDENT [None]
  - SCREAMING [None]
  - SEDATION [None]
  - SLEEP APNOEA SYNDROME [None]
  - SOCIAL AVOIDANT BEHAVIOUR [None]
  - SUICIDAL IDEATION [None]
  - SUICIDE ATTEMPT [None]
  - TACHYCARDIA [None]
  - TARDIVE DYSKINESIA [None]
  - TERMINAL INSOMNIA [None]
  - THYROID DISORDER [None]
  - TREATMENT NONCOMPLIANCE [None]
  - TREMOR [None]
  - URINARY INCONTINENCE [None]
  - VOMITING [None]
  - WEIGHT DECREASED [None]
  - WITHDRAWAL SYNDROME [None]
